FAERS Safety Report 23631619 (Version 1)
Quarter: 2024Q1

REPORT INFORMATION
  Report Type: Spontaneous
  Country: US (occurrence: US)
  Receive Date: 20240314
  Receipt Date: 20240314
  Transmission Date: 20240410
  Serious: No
  Sender: FDA-Public Use
  Company Number: US-SCIEGENP-2024SCSPO00086

PATIENT
  Age: 63 Year
  Sex: Female

DRUGS (1)
  1. PIRFENIDONE [Suspect]
     Active Substance: PIRFENIDONE
     Indication: Pulmonary fibrosis
     Dosage: 3 TABLETS 3 TIMES IN A DAY
     Route: 065
     Dates: start: 202304, end: 202401

REACTIONS (1)
  - Product dose omission issue [Unknown]
